FAERS Safety Report 14531631 (Version 6)
Quarter: 2019Q1

REPORT INFORMATION
  Report Type: Spontaneous
  Country: FR (occurrence: FR)
  Receive Date: 20180214
  Receipt Date: 20190319
  Transmission Date: 20190417
  Serious: Yes (Other)
  Sender: FDA-Public Use
  Company Number: FR-MYLANLABS-2018M1008619

PATIENT
  Age: 83 Year
  Sex: Female

DRUGS (43)
  1. MIRTAZAPINE. [Suspect]
     Active Substance: MIRTAZAPINE
     Indication: DEPRESSION
     Dosage: UNK,DOSAGE FORM: UNSPECIFIED
     Route: 048
  2. MIRTAZAPINE. [Suspect]
     Active Substance: MIRTAZAPINE
     Dosage: UNK,DOSAGE FORM: UNSPECIFIED
     Route: 048
  3. MOVICOL [Suspect]
     Active Substance: POLYETHYLENE GLYCOL 3350\POTASSIUM CHLORIDE\SODIUM BICARBONATE\SODIUM CHLORIDE
     Indication: CONSTIPATION
     Dosage: UNK,DOSAGE FORM: UNSPECIFIED
     Route: 048
  4. CALCIPARINE [Suspect]
     Active Substance: HEPARIN CALCIUM
     Dosage: UNK
     Route: 065
  5. BETNEVAL [Suspect]
     Active Substance: BETAMETHASONE VALERATE
     Indication: PRODUCT USED FOR UNKNOWN INDICATION
     Dosage: UNK,DOSAGE FORM: UNSPECIFIED
     Route: 003
  6. BETNEVAL [Suspect]
     Active Substance: BETAMETHASONE VALERATE
     Dosage: UNK,DOSAGE FORM: UNSPECIFIED
     Route: 003
  7. CATAPRESSAN                        /00171101/ [Suspect]
     Active Substance: CLONIDINE
     Dosage: UNK
     Route: 065
     Dates: end: 20171015
  8. LIDOCAINE. [Suspect]
     Active Substance: LIDOCAINE
     Indication: PAIN
     Dosage: UNK,DOSAGE FORM: UNSPECIFIED
     Route: 062
  9. LOXEN                              /00639802/ [Suspect]
     Active Substance: NICARDIPINE HYDROCHLORIDE
     Dosage: UNK
     Route: 065
     Dates: end: 20171016
  10. CALCIPARINE [Suspect]
     Active Substance: HEPARIN CALCIUM
     Dosage: UNK
     Route: 058
  11. CLONIDINE. [Suspect]
     Active Substance: CLONIDINE
     Indication: HYPERTENSION
     Dosage: UNK
     Route: 048
     Dates: end: 20171015
  12. VERSATIS [Suspect]
     Active Substance: LIDOCAINE
     Indication: PAIN
     Dosage: UNK
     Route: 062
  13. TRAMADOL. [Suspect]
     Active Substance: TRAMADOL
     Indication: PAIN
     Dosage: UNK,DOSAGE FORM: UNSPECIFIED
     Route: 048
  14. KARDEGIC [Suspect]
     Active Substance: ASPIRIN DL-LYSINE
     Dosage: UNK,DOSAGE FORM: UNSPECIFIED
     Route: 048
  15. LOXEN                              /00639802/ [Suspect]
     Active Substance: NICARDIPINE HYDROCHLORIDE
     Dosage: UNK
     Route: 048
  16. ECONAZOLE. [Suspect]
     Active Substance: ECONAZOLE NITRATE
     Dosage: UNK
     Route: 003
  17. MOVICOL [Suspect]
     Active Substance: POLYETHYLENE GLYCOL 3350\POTASSIUM CHLORIDE\SODIUM BICARBONATE\SODIUM CHLORIDE
     Dosage: UNK
     Route: 065
  18. KARDEGIC [Suspect]
     Active Substance: ASPIRIN DL-LYSINE
     Indication: PRODUCT USED FOR UNKNOWN INDICATION
     Dosage: UNK,DOSAGE FORM: UNSPECIFIED
     Route: 048
  19. KARDEGIC [Suspect]
     Active Substance: ASPIRIN DL-LYSINE
     Dosage: UNK
     Route: 048
  20. LOXEN                              /00639802/ [Suspect]
     Active Substance: NICARDIPINE HYDROCHLORIDE
     Indication: HYPERTENSION
     Dosage: UNK,DOSAGE FORM: UNSPECIFIED
     Route: 048
     Dates: end: 20171016
  21. CALCIPARINE [Suspect]
     Active Substance: HEPARIN CALCIUM
     Dosage: UNK,DOSAGE FORM: UNSPECIFIED
     Route: 058
  22. DIFFU K [Suspect]
     Active Substance: POTASSIUM CHLORIDE
     Dosage: UNK,,DOSAGE FORM: UNSPECIFIED
     Route: 048
  23. DIFFU K [Suspect]
     Active Substance: POTASSIUM CHLORIDE
     Dosage: UNK,,DOSAGE FORM: UNSPECIFIED
     Route: 048
  24. VERSATIS [Suspect]
     Active Substance: LIDOCAINE
     Dosage: UNK
     Route: 062
  25. FUROSEMIDE. [Suspect]
     Active Substance: FUROSEMIDE
     Indication: PRODUCT USED FOR UNKNOWN INDICATION
     Dosage: UNK,DOSAGE FORM: UNSPECIFIED
     Route: 048
  26. FUROSEMIDE. [Suspect]
     Active Substance: FUROSEMIDE
     Dosage: UNK,DOSAGE FORM: UNSPECIFIED
     Route: 048
  27. FUROSEMIDE. [Suspect]
     Active Substance: FUROSEMIDE
     Dosage: UNK
     Route: 065
  28. PARACETAMOL [Suspect]
     Active Substance: ACETAMINOPHEN
     Indication: PAIN
     Dosage: DOSAGE FORM: UNSPECIFIED
     Route: 048
  29. DIFFU K [Suspect]
     Active Substance: POTASSIUM CHLORIDE
     Indication: HYPOKALAEMIA
     Dosage: UNK,DOSAGE FORM: UNSPECIFIED
     Route: 048
  30. ALLOPURINOL. [Suspect]
     Active Substance: ALLOPURINOL
     Indication: GOUT
     Dosage: UNK,DOSAGE FORM: UNSPECIFIED
     Route: 048
  31. AMLODIPINE [Suspect]
     Active Substance: AMLODIPINE BESYLATE
     Indication: HYPERTENSION
     Dosage: UNK,DOSAGE FORM: UNSPECIFIED
     Route: 048
     Dates: start: 20171017, end: 20171017
  32. KARDEGIC [Suspect]
     Active Substance: ASPIRIN DL-LYSINE
     Dosage: UNK
     Route: 065
  33. BETNEVAL [Suspect]
     Active Substance: BETAMETHASONE VALERATE
     Dosage: UNK
     Route: 065
  34. VERSATIS [Suspect]
     Active Substance: LIDOCAINE
     Dosage: UNK
     Route: 065
  35. ALLOPURINOL. [Suspect]
     Active Substance: ALLOPURINOL
     Indication: HYPERURICAEMIA
     Dosage: UNK
     Route: 048
  36. ALLOPURINOL. [Suspect]
     Active Substance: ALLOPURINOL
     Dosage: UNK,DOSAGE FORM: UNSPECIFIED
     Route: 048
  37. ECONAZOLE. [Suspect]
     Active Substance: ECONAZOLE NITRATE
     Indication: PRODUCT USED FOR UNKNOWN INDICATION
     Dosage: UNK
     Route: 003
  38. ALLOPURINOL. [Suspect]
     Active Substance: ALLOPURINOL
     Dosage: UNK
  39. NEBIVOLOL. [Suspect]
     Active Substance: NEBIVOLOL
     Indication: HYPERTENSION
     Dosage: UNK,DOSAGE FORM: UNSPECIFIED
     Route: 048
  40. NEBIVOLOL. [Suspect]
     Active Substance: NEBIVOLOL
     Dosage: UNK,DOSAGE FORM: UNSPECIFIED
     Route: 048
  41. ECONAZOLE. [Suspect]
     Active Substance: ECONAZOLE NITRATE
     Dosage: UNK
     Route: 065
  42. CALCIPARINE [Suspect]
     Active Substance: HEPARIN CALCIUM
     Indication: ANTICOAGULANT THERAPY
     Dosage: UNK,DOSAGE FORM: UNSPECIFIED
     Route: 058
  43. CATAPRESSAN                        /00171101/ [Suspect]
     Active Substance: CLONIDINE
     Indication: HYPERTENSION
     Dosage: UNK
     Route: 048

REACTIONS (1)
  - Acute motor-sensory axonal neuropathy [Not Recovered/Not Resolved]

NARRATIVE: CASE EVENT DATE: 20151101
